FAERS Safety Report 10311011 (Version 1)
Quarter: 2014Q3

REPORT INFORMATION
  Report Type: Spontaneous
  Country: IT (occurrence: None)
  Receive Date: 20140715
  Receipt Date: 20140715
  Transmission Date: 20150326
  Serious: Yes (Life-Threatening)
  Sender: FDA-Public Use
  Company Number: AUR-APL-2014-07317

PATIENT
  Age: 81 Year
  Sex: Male

DRUGS (9)
  1. HUMALOG (INSULIN LISPRO) SOLUTION FOR INJECTION [Concomitant]
  2. FERROUS SULPHATE /00023503/ (FERROUS SULFATE) [Concomitant]
  3. ATORVASTATINE /013265101/ ATORVASTATIN [Concomitant]
  4. PANTOPRAZOLE SODIUM (PANTOPRAZOLE SODIUM SESQUIHYDRATE) [Concomitant]
  5. SINEMET (CARBIDOPA, LEVODOPA) TABLET [Concomitant]
  6. RAMIPRIL (RAMIPRIL) [Concomitant]
     Active Substance: RAMIPRIL
  7. METFORMIN (METFORMIN) UNKNOWN, UNKNOWN [Suspect]
     Active Substance: METFORMIN HYDROCHLORIDE
     Indication: DIABETES MELLITUS
     Route: 048
     Dates: start: 20140101, end: 20140706
  8. SPIRIVA [Concomitant]
     Active Substance: TIOTROPIUM BROMIDE MONOHYDRATE
  9. AMLODIPINE BESILATE (AMLODIPINE BESILATE) [Concomitant]
     Active Substance: AMLODIPINE BESYLATE

REACTIONS (4)
  - Lactic acidosis [None]
  - Renal failure acute [None]
  - Blood glucose increased [None]
  - Dialysis [None]

NARRATIVE: CASE EVENT DATE: 20140706
